FAERS Safety Report 9354108 (Version 1)
Quarter: 2013Q2

REPORT INFORMATION
  Report Type: Other
  Country: IT (occurrence: IT)
  Receive Date: 20130618
  Receipt Date: 20130618
  Transmission Date: 20140414
  Serious: Yes (Death)
  Sender: FDA-Public Use
  Company Number: IT-ACTAVIS-2013-11168

PATIENT
  Age: 65 Year
  Sex: Male

DRUGS (1)
  1. DOCETAXEL (UNKNOWN) [Suspect]
     Indication: PROSTATE CANCER METASTATIC
     Dosage: 75 MG/M2, EVERY TRIMESTER
     Route: 042

REACTIONS (2)
  - Respiratory failure [Fatal]
  - Respiratory distress [Fatal]
